FAERS Safety Report 14968517 (Version 1)
Quarter: 2018Q2

REPORT INFORMATION
  Report Type: Spontaneous
  Country: FR (occurrence: FR)
  Receive Date: 20180604
  Receipt Date: 20180604
  Transmission Date: 20180711
  Serious: Yes (Hospitalization, Other)
  Sender: FDA-Public Use
  Company Number: FR-PFIZER INC-2018218610

PATIENT
  Age: 51 Year
  Sex: Female

DRUGS (5)
  1. VOLTARENE (DICLOFENAC SODIUM) [Suspect]
     Active Substance: DICLOFENAC SODIUM
     Indication: ARTHRALGIA
     Dosage: 1 DF, 1X/DAY
     Route: 048
     Dates: start: 2018
  2. HAVLANE [Suspect]
     Active Substance: LOPRAZOLAM
     Indication: SLEEP DISORDER
     Dosage: 1 DF, 1X/DAY
     Route: 048
     Dates: start: 2018
  3. ALPRAZOLAM. [Suspect]
     Active Substance: ALPRAZOLAM
     Indication: EPILEPSY
     Dosage: 2.5 MG, 1X/DAY
     Route: 048
     Dates: start: 2018
  4. KLIPAL CODEINE [Suspect]
     Active Substance: ACETAMINOPHEN\CODEINE PHOSPHATE
     Indication: ARTHRALGIA
     Dosage: 6 DF, 1X/DAY
     Route: 048
     Dates: start: 2018
  5. DAFALGAN [Suspect]
     Active Substance: ACETAMINOPHEN
     Indication: ARTHRALGIA
     Dosage: 2 DF, 1X/DAY
     Route: 048
     Dates: start: 2018

REACTIONS (2)
  - Hepatitis cholestatic [Recovering/Resolving]
  - Hepatocellular injury [Recovering/Resolving]

NARRATIVE: CASE EVENT DATE: 20180323
